FAERS Safety Report 13823523 (Version 3)
Quarter: 2017Q3

REPORT INFORMATION
  Report Type: Spontaneous
  Country: DE (occurrence: DE)
  Receive Date: 20170802
  Receipt Date: 20170808
  Transmission Date: 20171127
  Serious: Yes (Other)
  Sender: FDA-Public Use
  Company Number: DE-ROCHE-1895770

PATIENT
  Age: 69 Year
  Sex: Female
  Weight: 70 kg

DRUGS (28)
  1. COTRIM FORTE [Concomitant]
     Active Substance: SULFAMETHOXAZOLE\TRIMETHOPRIM
     Route: 065
     Dates: start: 20130716
  2. PENTACARINAT [Suspect]
     Active Substance: PENTAMIDINE ISETHIONATE
     Route: 055
     Dates: start: 20140225
  3. PROLIA [Concomitant]
     Active Substance: DENOSUMAB
     Route: 065
     Dates: start: 20140602
  4. CLEXANE [Concomitant]
     Active Substance: ENOXAPARIN SODIUM
     Route: 065
     Dates: start: 20130402
  5. PENTACARINAT [Suspect]
     Active Substance: PENTAMIDINE ISETHIONATE
     Route: 055
     Dates: start: 20140226
  6. AMITRIPTYLINE [Concomitant]
     Active Substance: AMITRIPTYLINE
     Route: 065
     Dates: start: 20141208
  7. FLU VACCINATION [Concomitant]
     Active Substance: INFLUENZA VIRUS VACCINE
     Route: 065
     Dates: start: 20161017
  8. VIGANTOLETTEN [Concomitant]
     Active Substance: CHOLECALCIFEROL
  9. PENTACARINAT [Suspect]
     Active Substance: PENTAMIDINE ISETHIONATE
     Indication: PRODUCT USED FOR UNKNOWN INDICATION
     Route: 055
     Dates: start: 20140224
  10. PROLIA [Concomitant]
     Active Substance: DENOSUMAB
     Route: 065
     Dates: start: 20141215
  11. PENTACARINAT [Concomitant]
     Active Substance: PENTAMIDINE ISETHIONATE
     Route: 065
     Dates: start: 20140224
  12. COTRIM FORTE [Concomitant]
     Active Substance: SULFAMETHOXAZOLE\TRIMETHOPRIM
     Route: 065
     Dates: start: 20140212
  13. MABTHERA [Suspect]
     Active Substance: RITUXIMAB
     Indication: NON-HODGKIN^S LYMPHOMA RECURRENT
     Dosage: TOGETHER WITH BENDAMUSTINE
     Route: 058
     Dates: start: 20130415, end: 20140411
  14. PROLIA [Concomitant]
     Active Substance: DENOSUMAB
     Route: 065
     Dates: start: 20160525
  15. MARCUMAR [Concomitant]
     Active Substance: PHENPROCOUMON
     Route: 065
     Dates: start: 20130408, end: 20130411
  16. FAKTU [Concomitant]
     Route: 065
     Dates: start: 20130805
  17. MABTHERA [Suspect]
     Active Substance: RITUXIMAB
     Indication: NON-HODGKIN^S LYMPHOMA RECURRENT
     Dosage: VIA PORT
     Route: 042
     Dates: end: 20150914
  18. BENDAMUSTINE [Suspect]
     Active Substance: BENDAMUSTINE
     Indication: NON-HODGKIN^S LYMPHOMA RECURRENT
     Dosage: TOGETHER WITH MABTHERA
     Route: 065
     Dates: start: 20130415
  19. PROLIA [Concomitant]
     Active Substance: DENOSUMAB
     Route: 065
     Dates: start: 20161017
  20. FLU VACCINATION [Concomitant]
     Active Substance: INFLUENZA VIRUS VACCINE
     Route: 065
     Dates: start: 20141112
  21. FLU VACCINATION [Concomitant]
     Active Substance: INFLUENZA VIRUS VACCINE
     Route: 065
     Dates: start: 20150907
  22. PENTACARINAT [Suspect]
     Active Substance: PENTAMIDINE ISETHIONATE
     Route: 055
     Dates: start: 20140526
  23. LIPOTALON [Concomitant]
     Active Substance: DEXAMETHASONE PALMITATE
     Route: 065
     Dates: start: 20170302
  24. COTRIM FORTE [Concomitant]
     Active Substance: SULFAMETHOXAZOLE\TRIMETHOPRIM
     Route: 065
     Dates: start: 20161128
  25. LACTULOSE. [Concomitant]
     Active Substance: LACTULOSE
     Route: 065
     Dates: start: 20130716
  26. FAKTU [Concomitant]
     Route: 065
     Dates: start: 20130805
  27. PENTACARINAT [Suspect]
     Active Substance: PENTAMIDINE ISETHIONATE
     Route: 055
     Dates: start: 20140326
  28. PENTACARINAT [Suspect]
     Active Substance: PENTAMIDINE ISETHIONATE
     Route: 055
     Dates: start: 20140424

REACTIONS (8)
  - Dry age-related macular degeneration [Unknown]
  - Dysuria [Unknown]
  - Back pain [Not Recovered/Not Resolved]
  - Abdominal pain lower [Not Recovered/Not Resolved]
  - Night sweats [Unknown]
  - Cystitis [Unknown]
  - Fungal skin infection [Unknown]
  - Helicobacter infection [Unknown]

NARRATIVE: CASE EVENT DATE: 201308
